FAERS Safety Report 7478518-7 (Version None)
Quarter: 2011Q2

REPORT INFORMATION
  Report Type: 
  Country: None (occurrence: None)
  Receive Date: 20110513
  Receipt Date: 20100810
  Transmission Date: 20111010
  Serious: No
  Sender: FDA-Public Use
  Company Number: US-PFIZER INC-2010100863

PATIENT
  Sex: Male

DRUGS (1)
  1. CELEBREX [Suspect]
     Indication: PAIN
     Dosage: 10 MG, 2X/DAY
     Route: 048
     Dates: start: 20100809

REACTIONS (1)
  - PAIN [None]
